FAERS Safety Report 19698466 (Version 1)
Quarter: 2021Q3

REPORT INFORMATION
  Report Type: Spontaneous
  Country: IT (occurrence: IT)
  Receive Date: 20210813
  Receipt Date: 20210813
  Transmission Date: 20211014
  Serious: Yes (Other)
  Sender: FDA-Public Use
  Company Number: IT-TEVA-2021-IT-1940788

PATIENT
  Age: 74 Year
  Sex: Female
  Weight: 72 kg

DRUGS (8)
  1. CYANOCOBALAMIN. [Concomitant]
     Active Substance: CYANOCOBALAMIN
  2. ZOFENOPRIL [Concomitant]
     Active Substance: ZOFENOPRIL
  3. BENDAMUSTINE HYDROCHLORIDE. [Concomitant]
     Active Substance: BENDAMUSTINE HYDROCHLORIDE
     Indication: NON-HODGKIN^S LYMPHOMA
     Dosage: 150 MG
     Route: 042
     Dates: start: 20210705
  4. LAMIVUDINE. [Concomitant]
     Active Substance: LAMIVUDINE
  5. OMEPRAZOLE. [Concomitant]
     Active Substance: OMEPRAZOLE
  6. TEVAGRASTIM [Suspect]
     Active Substance: FILGRASTIM
     Indication: NEUTROPENIA
     Dosage: 60 KU
     Route: 058
     Dates: start: 20210714, end: 20210716
  7. KAYEXALATE [Concomitant]
     Active Substance: SODIUM POLYSTYRENE SULFONATE
  8. ACICLOVIR [Concomitant]
     Active Substance: ACYCLOVIR

REACTIONS (1)
  - Rash [Recovering/Resolving]

NARRATIVE: CASE EVENT DATE: 20210715
